FAERS Safety Report 7088966-5 (Version None)
Quarter: 2010Q4

REPORT INFORMATION
  Report Type: 
  Country: None (occurrence: None)
  Receive Date: 20101029
  Receipt Date: 20101021
  Transmission Date: 20110411
  Serious: Yes (Hospitalization, Other)
  Sender: FDA-Public Use
  Company Number: 2010SP042442

PATIENT
  Age: 30 Year
  Sex: Female

DRUGS (1)
  1. NUVARING [Suspect]
     Indication: CONTRACEPTION
     Dosage: VAG
     Route: 067
     Dates: end: 20090101

REACTIONS (4)
  - CHOLELITHIASIS [None]
  - DEEP VEIN THROMBOSIS [None]
  - ROAD TRAFFIC ACCIDENT [None]
  - THROMBOPHLEBITIS SUPERFICIAL [None]
